FAERS Safety Report 5778478-0 (Version None)
Quarter: 2008Q2

REPORT INFORMATION
  Report Type: 
  Country: None (occurrence: None)
  Receive Date: 20080617
  Receipt Date: 20080617
  Transmission Date: 20081010
  Serious: Yes (Life-Threatening)
  Sender: FDA-Public Use
  Company Number: None

PATIENT
  Age: 61 Year
  Sex: Female
  Weight: 79.3795 kg

DRUGS (1)
  1. AMBIEN [Suspect]
     Indication: SLEEP DISORDER
     Dosage: ONE BEDTIME PO
     Route: 048
     Dates: start: 20000101, end: 20080610

REACTIONS (7)
  - AMNESIA [None]
  - CRYING [None]
  - FEELING GUILTY [None]
  - HOMICIDAL IDEATION [None]
  - PAIN [None]
  - SOMNAMBULISM [None]
  - SUICIDAL BEHAVIOUR [None]
